FAERS Safety Report 4341116-8 (Version None)
Quarter: 2004Q2

REPORT INFORMATION
  Report Type: 
  Country: None (occurrence: None)
  Receive Date: 20040413
  Receipt Date: 20040401
  Transmission Date: 20050107
  Serious: Yes (Hospitalization)
  Sender: FDA-Public Use
  Company Number: NSADSS2001033447

PATIENT
  Age: 37 Year
  Sex: Female

DRUGS (3)
  1. REMICADE [Suspect]
     Indication: RHEUMATOID ARTHRITIS
     Dosage: 3 MG/KG, 1 IN 1 AS NECESSARY, INTRAVENOUS DRIP
     Route: 041
     Dates: start: 20010809, end: 20010809
  2. AUGMENTIN [Suspect]
     Indication: PHARYNGITIS
     Dosage: 2 GRAIN, 1 IN 1 DAY
     Dates: start: 20010810
  3. IBUPROFEN (IBUPROFEN) UNSPECIFIED [Suspect]
     Indication: PHARYNGITIS
     Dosage: 1 IN 1 AS NECESSARY
     Dates: start: 20010813

REACTIONS (2)
  - DRUG HYPERSENSITIVITY [None]
  - TOXIC SKIN ERUPTION [None]
